FAERS Safety Report 20522963 (Version 2)
Quarter: 2022Q1

REPORT INFORMATION
  Report Type: Spontaneous
  Country: US (occurrence: US)
  Receive Date: 20220227
  Receipt Date: 20220320
  Transmission Date: 20220423
  Serious: Yes (Other)
  Sender: FDA-Public Use
  Company Number: US-JNJFOC-20220241823

PATIENT
  Age: 23 Year
  Sex: Female

DRUGS (5)
  1. STELARA [Suspect]
     Active Substance: USTEKINUMAB
     Indication: Colitis ulcerative
     Route: 042
     Dates: start: 202003, end: 202011
  2. STELARA [Suspect]
     Active Substance: USTEKINUMAB
     Route: 058
  3. METHOTREXATE [Concomitant]
     Active Substance: METHOTREXATE
     Indication: Product used for unknown indication
  4. ROWASA [Concomitant]
     Active Substance: MESALAMINE
     Indication: Product used for unknown indication
  5. CORTENEMA [Concomitant]
     Active Substance: HYDROCORTISONE
     Indication: Product used for unknown indication

REACTIONS (6)
  - Colitis ulcerative [Not Recovered/Not Resolved]
  - Drug level below therapeutic [Unknown]
  - Drug ineffective [Unknown]
  - Inappropriate schedule of product administration [Unknown]
  - Off label use [Unknown]
  - Product use issue [Unknown]
